FAERS Safety Report 7000906-3 (Version None)
Quarter: 2010Q3

REPORT INFORMATION
  Report Type: 
  Country: None (occurrence: None)
  Receive Date: 20100920
  Receipt Date: 20100909
  Transmission Date: 20110219
  Serious: Yes (Hospitalization)
  Sender: FDA-Public Use
  Company Number: PHHY2010CH59673

PATIENT
  Age: 74 Year
  Sex: Male

DRUGS (5)
  1. LEPONEX [Suspect]
     Indication: SCHIZOPHRENIA, PARANOID TYPE
     Dosage: 100 MG, QD
     Dates: end: 20090312
  2. SIMVASTATIN [Suspect]
     Indication: HYPERLIPIDAEMIA
     Dosage: 40 MG, QD
  3. ASPIRIN [Concomitant]
     Dosage: UNK
  4. ATARAX [Concomitant]
     Dosage: UNK
  5. ELOCON [Concomitant]
     Dosage: UNK

REACTIONS (9)
  - BLOOD CREATINE PHOSPHOKINASE INCREASED [None]
  - BLOOD CREATININE INCREASED [None]
  - BLOOD UREA INCREASED [None]
  - INJURY [None]
  - MYOGLOBINAEMIA [None]
  - MYOGLOBINURIA [None]
  - RENAL FAILURE ACUTE [None]
  - TARDIVE DYSKINESIA [None]
  - URINARY TRACT INFECTION [None]
